FAERS Safety Report 6111213-5 (Version None)
Quarter: 2009Q1

REPORT INFORMATION
  Report Type: 
  Country: None (occurrence: None)
  Receive Date: 20090309
  Receipt Date: 20090309
  Transmission Date: 20090719
  Serious: Yes (Hospitalization, Other)
  Sender: FDA-Public Use
  Company Number: None

PATIENT
  Age: 26 Year
  Sex: Female
  Weight: 61.2356 kg

DRUGS (1)
  1. SUDAFED 12 HOUR [Suspect]
     Indication: NASAL CONGESTION
     Dosage: AS PRESCRIBED ON THE LABEL PO
     Route: 048
     Dates: start: 20090209, end: 20090224

REACTIONS (3)
  - DISSOCIATION [None]
  - MANIA [None]
  - SELF INJURIOUS BEHAVIOUR [None]
